FAERS Safety Report 20882225 (Version 1)
Quarter: 2022Q2

REPORT INFORMATION
  Report Type: Spontaneous
  Country: JP (occurrence: JP)
  Receive Date: 20220527
  Receipt Date: 20220527
  Transmission Date: 20220721
  Serious: Yes (Hospitalization, Other)
  Sender: FDA-Public Use
  Company Number: JP-ADVANZ PHARMA-202205003049

PATIENT

DRUGS (7)
  1. ZONISAMIDE [Suspect]
     Active Substance: ZONISAMIDE
     Indication: Therapeutic response shortened
     Dosage: 25 MG, QD (TRERIEF)
     Route: 048
  2. CARBIDOPA\LEVODOPA [Concomitant]
     Active Substance: CARBIDOPA\LEVODOPA
     Dosage: UNK, DOPACOL 450 (AT 83 YEAR AGE)
  3. CARBIDOPA\LEVODOPA [Concomitant]
     Active Substance: CARBIDOPA\LEVODOPA
     Dosage: UNK, DOPACOL 500 (AT 84 YEAR AGE)
  4. ROPINIROLE HYDROCHLORIDE [Concomitant]
     Active Substance: ROPINIROLE HYDROCHLORIDE
     Dosage: UNK, ROPINIROLE HYDROCHLORIDE 3 (AT 83 YEARS AGE)
  5. ROPINIROLE HYDROCHLORIDE [Concomitant]
     Active Substance: ROPINIROLE HYDROCHLORIDE
     Dosage: UNK, ROPINIROLE HYDROCHLORIDE 2 (AT 84 YEARS AGE)
  6. SELEGILINE HYDROCHLORIDE [Concomitant]
     Active Substance: SELEGILINE HYDROCHLORIDE
     Dosage: UNK, SELEGILINE HYDROCHLORIDE 2.5 (AT 83 YEARS OF AGE)
  7. SELEGILINE HYDROCHLORIDE [Concomitant]
     Active Substance: SELEGILINE HYDROCHLORIDE
     Dosage: UNK, SELEGILINE HYDROCHLORIDE 2.5 (AT 84 YEARS OF AGE)

REACTIONS (3)
  - Cellulitis [Unknown]
  - Gastric ulcer [Unknown]
  - Decreased appetite [Unknown]
